FAERS Safety Report 8488425-9 (Version None)
Quarter: 2012Q2

REPORT INFORMATION
  Report Type: 
  Country: None (occurrence: None)
  Receive Date: 20120626
  Receipt Date: 20120611
  Transmission Date: 20120825
  Serious: Yes (Death)
  Sender: FDA-Public Use
  Company Number: 1322413

PATIENT
  Age: 38 Year
  Sex: Female

DRUGS (4)
  1. HEPARIN SODIUM [Suspect]
     Indication: THORACIC OUTLET SYNDROME
     Dosage: INTRAMUSCULAR
     Route: 030
  2. LIDOCAINE HYDROCHLORIDE [Concomitant]
  3. (PLANT ALKALOIDS AND OTHER NATURAL PRODUCTS) [Concomitant]
  4. CYANOCOBALAMIN [Concomitant]

REACTIONS (15)
  - NECK PAIN [None]
  - SUBARACHNOID HAEMORRHAGE [None]
  - VERTEBRAL ARTERY DISSECTION [None]
  - SPINAL CORD INFARCTION [None]
  - OFF LABEL USE [None]
  - HEADACHE [None]
  - SINUS TACHYCARDIA [None]
  - NECROSIS [None]
  - NAUSEA [None]
  - HYPOXIC-ISCHAEMIC ENCEPHALOPATHY [None]
  - GAIT DISTURBANCE [None]
  - VENTRICULAR TACHYCARDIA [None]
  - SPINAL CORD DISORDER [None]
  - CARDIO-RESPIRATORY ARREST [None]
  - ASTHENIA [None]
